FAERS Safety Report 6603917-2 (Version None)
Quarter: 2010Q1

REPORT INFORMATION
  Report Type: 
  Country: None (occurrence: None)
  Receive Date: 20100226
  Receipt Date: 20090316
  Transmission Date: 20100710
  Serious: No
  Sender: FDA-Public Use
  Company Number: A0773627A

PATIENT
  Age: 1 Year
  Sex: Female

DRUGS (3)
  1. LAMICTAL CD [Suspect]
     Indication: BIPOLAR DISORDER
     Dosage: 150MG PER DAY
     Dates: start: 20090201
  2. ZOLOFT [Concomitant]
  3. MOBIC [Concomitant]

REACTIONS (3)
  - DRUG EXPOSURE VIA BREAST MILK [None]
  - RASH [None]
  - URTICARIA [None]
